FAERS Safety Report 14190815 (Version 2)
Quarter: 2017Q4

REPORT INFORMATION
  Report Type: Spontaneous
  Country: CH (occurrence: CH)
  Receive Date: 20171115
  Receipt Date: 20171129
  Transmission Date: 20180321
  Serious: Yes (Hospitalization)
  Sender: FDA-Public Use
  Company Number: CH-PFIZER INC-2017387809

PATIENT
  Age: 72 Year
  Sex: Male
  Weight: 76 kg

DRUGS (8)
  1. LYRICA [Interacting]
     Active Substance: PREGABALIN
     Indication: NEUROPATHY PERIPHERAL
  2. DAFALGAN [Concomitant]
     Active Substance: ACETAMINOPHEN
     Indication: KYPHOSCOLIOSIS
  3. FLURAZEPAM [Interacting]
     Active Substance: FLURAZEPAM\FLURAZEPAM HYDROCHLORIDE
     Indication: SLEEP DISORDER
     Dosage: 15 MG, 1X/DAY IN THE EVENING
     Route: 048
     Dates: start: 201301
  4. FENTANYL. [Interacting]
     Active Substance: FENTANYL
     Indication: NEURALGIA
     Dosage: 100 UG, EVERY 3 DAYS 1
     Route: 062
     Dates: start: 2010
  5. SYMBICORT [Concomitant]
     Active Substance: BUDESONIDE\FORMOTEROL FUMARATE DIHYDRATE
     Indication: CHRONIC OBSTRUCTIVE PULMONARY DISEASE
     Dosage: 200/6; 1-2X/DAY
     Route: 055
     Dates: start: 2010
  6. LYRICA [Suspect]
     Active Substance: PREGABALIN
     Indication: NEURALGIA
     Dosage: 50 MG, 2-3X/DAY
     Route: 048
     Dates: start: 2013
  7. TAMSULOSIN [Concomitant]
     Active Substance: TAMSULOSIN
     Indication: BENIGN PROSTATIC HYPERPLASIA
     Dosage: 0.4 MG, 1X/DAY
     Route: 048
     Dates: start: 2010
  8. DAFALGAN [Concomitant]
     Active Substance: ACETAMINOPHEN
     Indication: PAIN
     Dosage: 1 G, 3X/DAY
     Route: 048

REACTIONS (2)
  - Drug interaction [Recovered/Resolved]
  - Coma [Recovered/Resolved]

NARRATIVE: CASE EVENT DATE: 20160406
